FAERS Safety Report 5363719-4 (Version None)
Quarter: 2007Q2

REPORT INFORMATION
  Report Type: 
  Country: None (occurrence: None)
  Receive Date: 20070620
  Receipt Date: 20070614
  Transmission Date: 20071010
  Serious: Yes (Death, Other)
  Sender: FDA-Public Use
  Company Number: PHBS2007JP04630

PATIENT

DRUGS (2)
  1. ZOMETA [Suspect]
     Indication: MULTIPLE MYELOMA
  2. AREDIA [Suspect]
     Route: 042

REACTIONS (7)
  - LIP EROSION [None]
  - LOCAL SWELLING [None]
  - ORAL PAIN [None]
  - OSTEONECROSIS [None]
  - PRIMARY SEQUESTRUM [None]
  - PURULENT DISCHARGE [None]
  - WOUND DEBRIDEMENT [None]
